FAERS Safety Report 16230395 (Version 2)
Quarter: 2019Q2

REPORT INFORMATION
  Report Type: Spontaneous
  Country: FR (occurrence: FR)
  Receive Date: 20190423
  Receipt Date: 20190424
  Transmission Date: 20190711
  Serious: Yes (Hospitalization)
  Sender: FDA-Public Use
  Company Number: FR-ASTRAZENECA-2019SE61322

PATIENT
  Age: 734 Month
  Sex: Female

DRUGS (3)
  1. XEROQUEL [Suspect]
     Active Substance: QUETIAPINE FUMARATE
     Indication: BIPOLAR DISORDER
     Dosage: TABLET SR
     Route: 048
     Dates: start: 2018
  2. XEROQUEL [Suspect]
     Active Substance: QUETIAPINE FUMARATE
     Indication: BIPOLAR DISORDER
     Route: 048
  3. TERALITHE SR [Concomitant]
     Indication: BIPOLAR DISORDER
     Dosage: TIALLY AT 1 TABLET AND A HALF DAILY THEN 2 TABLETS DAILY AND FINALLY 2 TABLETS AND A HALF DAILY

REACTIONS (5)
  - Non-alcoholic steatohepatitis [Not Recovered/Not Resolved]
  - Hepatic cirrhosis [Not Recovered/Not Resolved]
  - Varices oesophageal [Unknown]
  - Portal hypertension [Unknown]
  - Diabetes mellitus [Unknown]

NARRATIVE: CASE EVENT DATE: 201711
